FAERS Safety Report 14255418 (Version 6)
Quarter: 2018Q2

REPORT INFORMATION
  Report Type: Spontaneous
  Country: None (occurrence: US)
  Receive Date: 20171206
  Receipt Date: 20180531
  Transmission Date: 20180711
  Serious: Yes (Hospitalization, Other)
  Sender: FDA-Public Use
  Company Number: US-ACORDA-ACO_144571_2017

PATIENT
  Age: 65 Year
  Sex: Male

DRUGS (6)
  1. REBIF [Suspect]
     Active Substance: INTERFERON BETA-1A
     Indication: PRODUCT USED FOR UNKNOWN INDICATION
     Dosage: UNK
     Route: 065
  2. AMPYRA [Suspect]
     Active Substance: DALFAMPRIDINE
     Indication: GAIT DISTURBANCE
     Dosage: UNK
     Route: 065
  3. TECFIDERA [Suspect]
     Active Substance: DIMETHYL FUMARATE
     Dosage: 240 MG, BID
     Route: 048
     Dates: end: 201711
  4. TECFIDERA [Suspect]
     Active Substance: DIMETHYL FUMARATE
     Dosage: 240 MG, BID
     Route: 048
     Dates: start: 201804
  5. COPAXONE [Suspect]
     Active Substance: GLATIRAMER ACETATE
     Indication: PRODUCT USED FOR UNKNOWN INDICATION
     Dosage: UNK
     Route: 065
  6. TECFIDERA [Suspect]
     Active Substance: DIMETHYL FUMARATE
     Indication: MULTIPLE SCLEROSIS
     Dosage: 120 MG, BID
     Route: 048
     Dates: start: 2013

REACTIONS (26)
  - Head discomfort [Unknown]
  - Visual impairment [Not Recovered/Not Resolved]
  - Micturition urgency [Unknown]
  - Urinary incontinence [Unknown]
  - Condition aggravated [Unknown]
  - Throat cancer [Recovered/Resolved]
  - Injection site reaction [Unknown]
  - Pollakiuria [Unknown]
  - Loss of consciousness [Unknown]
  - Tinnitus [Unknown]
  - Feeling jittery [Unknown]
  - Gait disturbance [Unknown]
  - Therapy cessation [Unknown]
  - Asthenia [Not Recovered/Not Resolved]
  - Drug ineffective [Unknown]
  - Dysgraphia [Unknown]
  - Blindness [Not Recovered/Not Resolved]
  - Influenza like illness [Unknown]
  - Throat irritation [Unknown]
  - Balance disorder [Recovering/Resolving]
  - Headache [Unknown]
  - Constipation [Unknown]
  - Tremor [Unknown]
  - Craniocerebral injury [Unknown]
  - Face injury [Unknown]
  - Dysphagia [Recovered/Resolved]

NARRATIVE: CASE EVENT DATE: 201711
